FAERS Safety Report 9720592 (Version 3)
Quarter: 2014Q1

REPORT INFORMATION
  Report Type: Report from Study
  Country: US (occurrence: US)
  Receive Date: 20131129
  Receipt Date: 20140124
  Transmission Date: 20141002
  Serious: No
  Sender: FDA-Public Use
  Company Number: PHEH2013US017674

PATIENT
  Age: 61 Year
  Sex: Male
  Weight: 72.56 kg

DRUGS (5)
  1. TASIGNA [Suspect]
     Indication: CHRONIC MYELOID LEUKAEMIA
     Dosage: 2 DF, BID
     Route: 048
     Dates: start: 20130718
  2. CIALIS [Concomitant]
     Dosage: 5 MG, UNK
     Route: 048
  3. FLOMAX [Concomitant]
     Dosage: 0.4 MG, UNK
     Route: 048
  4. MULTIVITAMIN//VITAMINS NOS [Concomitant]
     Dosage: UNK UKN, UNK
     Route: 048
  5. ASPIRE [Concomitant]
     Dosage: 81 MG, UNK
     Route: 048

REACTIONS (5)
  - Rash [Unknown]
  - Cough [Unknown]
  - Headache [Recovered/Resolved]
  - Abdominal pain upper [Recovered/Resolved]
  - Oropharyngeal pain [Unknown]
